FAERS Safety Report 8198542-9 (Version None)
Quarter: 2012Q1

REPORT INFORMATION
  Report Type: 
  Country: None (occurrence: None)
  Receive Date: 20120309
  Receipt Date: 20120301
  Transmission Date: 20120608
  Serious: Yes (Other)
  Sender: FDA-Public Use
  Company Number: AU-JNJFOC-20111104847

PATIENT
  Sex: Female

DRUGS (4)
  1. STELARA [Suspect]
     Route: 058
     Dates: start: 20120204
  2. STELARA [Suspect]
     Route: 058
     Dates: start: 20111106
  3. STELARA [Suspect]
     Indication: PRODUCT USED FOR UNKNOWN INDICATION
     Route: 058
     Dates: start: 20110813
  4. STELARA [Suspect]
     Route: 058
     Dates: start: 20110715

REACTIONS (2)
  - HYPOTENSION [None]
  - IRON DEFICIENCY [None]
